FAERS Safety Report 9058669 (Version 2)
Quarter: 2013Q1

REPORT INFORMATION
  Report Type: Report from Study
  Country: EG (occurrence: EG)
  Receive Date: 20130204
  Receipt Date: 20130206
  Transmission Date: 20140127
  Serious: Yes (Death, Hospitalization)
  Sender: FDA-Public Use
  Company Number: EG-ROCHE-1178846

PATIENT
  Age: 59 None
  Sex: Female
  Weight: 64 kg

DRUGS (13)
  1. RITUXIMAB [Suspect]
     Indication: NON-HODGKIN^S LYMPHOMA
     Route: 042
     Dates: start: 20120718
  2. RITUXIMAB [Suspect]
     Indication: NON-HODGKIN^S LYMPHOMA
     Route: 058
     Dates: start: 20120815
  3. RITUXIMAB [Suspect]
     Route: 058
     Dates: start: 20120919
  4. RITUXIMAB [Suspect]
     Route: 058
     Dates: start: 20121017
  5. RITUXIMAB [Suspect]
     Route: 058
     Dates: start: 20121114
  6. RITUXIMAB [Suspect]
     Route: 058
     Dates: start: 20121212
  7. FUCICORT [Concomitant]
     Indication: RASH
     Route: 061
     Dates: start: 20120819, end: 20120827
  8. FUCICORT [Concomitant]
     Route: 065
     Dates: start: 20120920
  9. PARACETAMOL [Concomitant]
     Indication: PYREXIA
     Route: 065
     Dates: start: 20120718, end: 20120819
  10. PARACETAMOL [Concomitant]
     Dosage: 2 TABLETS ONCE ON FEVER
     Route: 065
     Dates: start: 20121021, end: 20121021
  11. PARACETAMOL [Concomitant]
     Route: 065
     Dates: start: 20121126, end: 20121126
  12. NIFUROXAZIDE [Concomitant]
     Indication: DIARRHOEA
     Route: 065
     Dates: start: 20121101, end: 20121106
  13. NIFUROXAZIDE [Concomitant]
     Route: 065
     Dates: start: 20121221

REACTIONS (3)
  - Multi-organ failure [Fatal]
  - Anaemia [Recovered/Resolved with Sequelae]
  - Thrombocytopenia [Recovering/Resolving]
